FAERS Safety Report 7964699-5 (Version None)
Quarter: 2011Q4

REPORT INFORMATION
  Report Type: 
  Country: None (occurrence: None)
  Receive Date: 20111208
  Receipt Date: 20111130
  Transmission Date: 20120403
  Serious: Yes (Hospitalization, Disabling, Other)
  Sender: FDA-Public Use
  Company Number: US-JNJFOC-20111011062

PATIENT
  Sex: Female
  Weight: 86.18 kg

DRUGS (6)
  1. SYNTHROID [Concomitant]
     Indication: THYROID DISORDER
     Route: 048
  2. DURAGESIC-100 [Suspect]
     Route: 062
     Dates: start: 20090101
  3. DURAGESIC-100 [Suspect]
     Indication: PAIN
     Route: 062
     Dates: start: 20030101, end: 20090101
  4. DILAUDID [Suspect]
     Indication: BREAKTHROUGH PAIN
     Route: 048
     Dates: start: 20050101
  5. DURAGESIC-100 [Suspect]
     Dosage: 100UG/HR + 25UG/HR
     Route: 062
     Dates: start: 20090101
  6. NEURONTIN [Concomitant]
     Indication: WITHDRAWAL SYNDROME
     Route: 048
     Dates: start: 20111024

REACTIONS (11)
  - FALL [None]
  - WRONG TECHNIQUE IN DRUG USAGE PROCESS [None]
  - DRUG INEFFECTIVE [None]
  - PRODUCT QUALITY ISSUE [None]
  - CEREBRAL HAEMORRHAGE [None]
  - HEAD INJURY [None]
  - CONVULSION [None]
  - MALAISE [None]
  - DISABILITY [None]
  - DRUG ADMINISTERED AT INAPPROPRIATE SITE [None]
  - INAPPROPRIATE SCHEDULE OF DRUG ADMINISTRATION [None]
